FAERS Safety Report 6026979-2 (Version None)
Quarter: 2009Q1

REPORT INFORMATION
  Report Type: 
  Country: None (occurrence: None)
  Receive Date: 20090105
  Receipt Date: 20081217
  Transmission Date: 20090719
  Serious: Yes (Hospitalization)
  Sender: FDA-Public Use
  Company Number: US-PFIZER INC-2006035938

PATIENT
  Sex: Male
  Weight: 127.44 kg

DRUGS (3)
  1. INHALED HUMAN INSULIN [Suspect]
     Indication: TYPE 2 DIABETES MELLITUS
     Dosage: 4 MG, 4X/DAY
     Route: 055
     Dates: start: 20060124
  2. GABAPENTIN [Concomitant]
     Route: 048
     Dates: start: 20030905
  3. ATORVASTATIN CALCIUM [Concomitant]
     Route: 048
     Dates: start: 20041012

REACTIONS (1)
  - CELLULITIS [None]
